FAERS Safety Report 9524473 (Version 1)
Quarter: 2013Q1

REPORT INFORMATION
  Report Type: Spontaneous
  Country: US (occurrence: None)
  Receive Date: 20130313
  Receipt Date: 20130313
  Transmission Date: 20140127
  Serious: No
  Sender: FDA-Public Use
  Company Number: 1000031191

PATIENT
  Sex: Female

DRUGS (2)
  1. SAVELLA [Suspect]
     Dosage: 100 MG (50 MG, 2 IN 1 D), ORAL
     Route: 048
  2. SAVELLA [Suspect]
     Dosage: 100 MG (50 MG, 2 IN 1 D), ORAL
     Route: 048

REACTIONS (1)
  - Blood pressure increased [None]
